FAERS Safety Report 21998659 (Version 1)
Quarter: 2023Q1

REPORT INFORMATION
  Report Type: Other
  Country: CA (occurrence: CA)
  Receive Date: 20230216
  Receipt Date: 20230216
  Transmission Date: 20230418
  Serious: Yes (Other)
  Sender: FDA-Public Use
  Company Number: CA-002147023-NVSC2023CA027680

PATIENT
  Age: 27 Year
  Sex: Male

DRUGS (3)
  1. XOLAIR [Suspect]
     Active Substance: OMALIZUMAB
     Indication: Chronic spontaneous urticaria
     Dosage: 300 MG, EVERY 4 WEEKS
     Route: 058
     Dates: start: 20221102
  2. SYMBICORT [Concomitant]
     Active Substance: BUDESONIDE\FORMOTEROL FUMARATE DIHYDRATE
     Indication: Asthma
     Dosage: 2 DOSAGE FORM, QD
     Dates: start: 2016
  3. EPINEPHRINE [Concomitant]
     Active Substance: EPINEPHRINE
     Indication: Idiopathic urticaria
     Dosage: 1 DOSAGE FORM, PRN
     Dates: start: 20220510

REACTIONS (3)
  - Anaphylactic reaction [Recovering/Resolving]
  - Burning sensation [Unknown]
  - Urticaria [Unknown]
